FAERS Safety Report 9083020 (Version 1)
Quarter: 2013Q1

REPORT INFORMATION
  Report Type: Spontaneous
  Country: IT (occurrence: IT)
  Receive Date: 20130130
  Receipt Date: 20130130
  Transmission Date: 20140127
  Serious: Yes (Hospitalization)
  Sender: FDA-Public Use
  Company Number: IT-MERCK-1301ITA013132

PATIENT
  Age: 68 Year
  Sex: Male

DRUGS (11)
  1. XELEVIA [Suspect]
     Indication: TYPE 2 DIABETES MELLITUS
     Dosage: 1 DF, QD
     Route: 048
     Dates: start: 20121001, end: 20121212
  2. METFORMIN [Suspect]
     Indication: TYPE 2 DIABETES MELLITUS
     Dosage: 3 DOSE (UNITS) DAILY
     Route: 048
     Dates: start: 20020101, end: 20121212
  3. METFORMIN [Suspect]
     Dosage: UNK
     Route: 048
  4. SIMVASTATIN [Concomitant]
     Route: 048
  5. KRUDIPIN [Concomitant]
  6. PEPTAZOL [Concomitant]
  7. LIMPIDEX [Concomitant]
  8. XATRAL [Concomitant]
  9. NORAPRIL [Concomitant]
     Dosage: 5 MG, UNK
     Route: 048
  10. CARDIRENE [Concomitant]
     Dosage: 160 MG, UNK
     Route: 048
  11. ARLEVERT [Concomitant]
     Dosage: UNK

REACTIONS (4)
  - Ataxia [Recovered/Resolved]
  - Hypomagnesaemia [Recovered/Resolved]
  - Syncope [Recovered/Resolved]
  - Vertigo [Recovered/Resolved]
